FAERS Safety Report 7973579-0 (Version None)
Quarter: 2011Q4

REPORT INFORMATION
  Report Type: 
  Country: None (occurrence: None)
  Receive Date: 20111213
  Receipt Date: 20111201
  Transmission Date: 20120403
  Serious: Yes (Death)
  Sender: FDA-Public Use
  Company Number: GB-SHIRE-ALL1-2011-04724

PATIENT

DRUGS (1)
  1. REPLAGAL [Suspect]
     Indication: GAUCHER'S DISEASE
     Dosage: 14 MG(4 X 3.5), 1X/2WKS
     Route: 041
     Dates: end: 20111110

REACTIONS (1)
  - CARDIAC DEATH [None]
